FAERS Safety Report 22380763 (Version 1)
Quarter: 2023Q2

REPORT INFORMATION
  Report Type: Spontaneous
  Country: US (occurrence: US)
  Receive Date: 20230530
  Receipt Date: 20230530
  Transmission Date: 20230721
  Serious: Yes (Other)
  Sender: FDA-Public Use
  Company Number: US-drreddys-SPO/USA/23/0165917

PATIENT
  Age: 33 Year
  Sex: Male

DRUGS (3)
  1. TACROLIMUS [Suspect]
     Active Substance: TACROLIMUS
     Indication: Immunosuppressant drug therapy
  2. PREDNISONE [Suspect]
     Active Substance: PREDNISONE
     Indication: Immunosuppressant drug therapy
  3. MILRINONE [Concomitant]
     Active Substance: MILRINONE
     Indication: Cardiomyopathy

REACTIONS (2)
  - Pulmonary mass [Recovering/Resolving]
  - Pneumonia cryptococcal [Recovering/Resolving]
